FAERS Safety Report 23069412 (Version 1)
Quarter: 2023Q4

REPORT INFORMATION
  Report Type: Spontaneous
  Country: US (occurrence: US)
  Receive Date: 20231016
  Receipt Date: 20231016
  Transmission Date: 20240110
  Serious: Yes (Life-Threatening, Hospitalization, Other)
  Sender: FDA-Public Use
  Company Number: US-PFIZER INC-PV202300165588

PATIENT
  Age: 45 Year
  Sex: Male

DRUGS (9)
  1. LORAZEPAM [Suspect]
     Active Substance: LORAZEPAM
     Indication: Cough
     Dosage: UNK
  2. DIAZEPAM [Suspect]
     Active Substance: DIAZEPAM
     Indication: Cough
     Dosage: PUSHES
  3. MIDAZOLAM [Suspect]
     Active Substance: MIDAZOLAM
     Indication: Cough
     Dosage: UNK
  4. HYDROMORPHONE HYDROCHLORIDE [Suspect]
     Active Substance: HYDROMORPHONE HYDROCHLORIDE
     Indication: Cough
     Dosage: DRIP
  5. EPINEPHRINE [Suspect]
     Active Substance: EPINEPHRINE
     Indication: Cough
     Dosage: RACEMIC
  6. LIDOCAINE [Suspect]
     Active Substance: LIDOCAINE
     Indication: Cough
     Dosage: NEBULIZED
  7. PROMETHAZINE [Suspect]
     Active Substance: PROMETHAZINE HYDROCHLORIDE
     Indication: Cough
     Dosage: UNK
  8. MORPHINE [Suspect]
     Active Substance: MORPHINE
     Indication: Cough
     Dosage: UNK
     Route: 060
  9. ALBUTEROL [Suspect]
     Active Substance: ALBUTEROL
     Indication: Cough
     Dosage: UNK

REACTIONS (2)
  - Drug ineffective [Recovered/Resolved]
  - Off label use [Unknown]
